FAERS Safety Report 22074172 (Version 2)
Quarter: 2023Q2

REPORT INFORMATION
  Report Type: Spontaneous
  Country: US (occurrence: None)
  Receive Date: 20230308
  Receipt Date: 20230526
  Transmission Date: 20230722
  Serious: Yes (Other)
  Sender: FDA-Public Use
  Company Number: 2023A050430

PATIENT
  Age: 16190 Day
  Sex: Male
  Weight: 81.6 kg

DRUGS (22)
  1. PRILOSEC OTC [Suspect]
     Active Substance: OMEPRAZOLE MAGNESIUM
     Indication: Gastrooesophageal reflux disease
     Route: 048
     Dates: start: 2019, end: 2021
  2. PRILOSEC OTC [Suspect]
     Active Substance: OMEPRAZOLE MAGNESIUM
     Indication: Gastrooesophageal reflux disease
     Route: 048
     Dates: start: 201901, end: 202107
  3. PROPRANOLOL [Concomitant]
     Active Substance: PROPRANOLOL HYDROCHLORIDE
  4. FLUCELVAX NOS [Concomitant]
     Active Substance: INFLUENZA A VIRUS A/BRISBANE/10/2010 (H1N1) ANTIGEN (MDCK CELL DERIVED, PROPIOLACTONE INACTIVATED)\I
  5. DESOXIMETASONE [Concomitant]
     Active Substance: DESOXIMETASONE
  6. AZITHROMYCIN [Concomitant]
     Active Substance: AZITHROMYCIN
  7. PREDNISONE [Concomitant]
     Active Substance: PREDNISONE
  8. FLUTICASONE [Concomitant]
     Active Substance: FLUTICASONE
  9. CLARITHROMYCIN [Concomitant]
     Active Substance: CLARITHROMYCIN
  10. LORAZEPAM [Concomitant]
     Active Substance: LORAZEPAM
  11. ESCITALOPRAM [Concomitant]
     Active Substance: ESCITALOPRAM OXALATE
  12. TRINTELLIX [Concomitant]
     Active Substance: VORTIOXETINE HYDROBROMIDE
  13. HYDROCODONE [Concomitant]
     Active Substance: HYDROCODONE
  14. CHLORHEXIDINE [Concomitant]
     Active Substance: CHLORHEXIDINE
  15. ALPRAZOLAM [Concomitant]
     Active Substance: ALPRAZOLAM
  16. DAPSONE [Concomitant]
     Active Substance: DAPSONE
  17. MYCOPHENOLATE MOFETIL [Concomitant]
     Active Substance: MYCOPHENOLATE MOFETIL
  18. CARVEDILOL [Concomitant]
     Active Substance: CARVEDILOL
  19. LOSARTAN [Concomitant]
     Active Substance: LOSARTAN
  20. ACETAMINOPHEN [Concomitant]
     Active Substance: ACETAMINOPHEN
  21. TUMS [Concomitant]
     Active Substance: CALCIUM CARBONATE
  22. PEPTO-BISMOL [Concomitant]
     Active Substance: BISMUTH SUBSALICYLATE

REACTIONS (3)
  - Acute kidney injury [Recovered/Resolved]
  - Tubulointerstitial nephritis [Recovered/Resolved]
  - Chronic kidney disease [Unknown]

NARRATIVE: CASE EVENT DATE: 20210714
